FAERS Safety Report 25141552 (Version 3)
Quarter: 2025Q2

REPORT INFORMATION
  Report Type: Report from Study
  Country: US (occurrence: US)
  Receive Date: 20250331
  Receipt Date: 20250428
  Transmission Date: 20250716
  Serious: Yes (Hospitalization, Other)
  Sender: BAYER HEALTHCARE PHARMACEUTICALS INC.
  Company Number: US-BAYER-2025A012222

PATIENT
  Age: 76 Year
  Sex: Female
  Weight: 54.422 kg

DRUGS (15)
  1. ADEMPAS [Suspect]
     Active Substance: RIOCIGUAT
     Indication: Pulmonary arterial hypertension
     Route: 048
     Dates: start: 20250103
  2. ADEMPAS [Suspect]
     Active Substance: RIOCIGUAT
     Indication: Pulmonary arterial hypertension
     Dosage: 1 MG, TID
     Route: 048
  3. ORENITRAM [Suspect]
     Active Substance: TREPROSTINIL
     Indication: Pulmonary arterial hypertension
     Dosage: 5 MG, TID
     Route: 048
     Dates: start: 20240108
  4. FUROSEMIDE [Concomitant]
     Active Substance: FUROSEMIDE
  5. TYLENOL EXTRA STRENGTH [Concomitant]
     Active Substance: ACETAMINOPHEN
  6. IMODIUM [Concomitant]
     Active Substance: LOPERAMIDE HYDROCHLORIDE
  7. FOLIC ACID [Concomitant]
     Active Substance: FOLIC ACID
  8. TEMAZEPAM [Concomitant]
     Active Substance: TEMAZEPAM
  9. PYRIDOXINE HYDROCHLORIDE [Concomitant]
     Active Substance: PYRIDOXINE HYDROCHLORIDE
  10. VITAMIN D2 [Concomitant]
     Active Substance: ERGOCALCIFEROL
  11. POTASSIUM CHLORIDE [Concomitant]
     Active Substance: POTASSIUM CHLORIDE
  12. SPIRONOLACTONE [Concomitant]
     Active Substance: SPIRONOLACTONE
  13. OXYGEN [Concomitant]
     Active Substance: OXYGEN
  14. AMBRISENTAN [Concomitant]
     Active Substance: AMBRISENTAN
  15. WINREVAIR [Concomitant]
     Active Substance: SOTATERCEPT-CSRK

REACTIONS (18)
  - Gastrointestinal disorder [None]
  - Diarrhoea [Not Recovered/Not Resolved]
  - Diastolic hypotension [None]
  - Hospitalisation [None]
  - Ascites [Not Recovered/Not Resolved]
  - Flatulence [Not Recovered/Not Resolved]
  - Dysgeusia [Not Recovered/Not Resolved]
  - Decreased appetite [Not Recovered/Not Resolved]
  - Dyspnoea [Not Recovered/Not Resolved]
  - Headache [None]
  - Weight decreased [Not Recovered/Not Resolved]
  - Dizziness [None]
  - Fatigue [None]
  - Abdominal distension [None]
  - Asthenia [None]
  - Hypoaesthesia [None]
  - Paraesthesia [None]
  - Pain in extremity [None]

NARRATIVE: CASE EVENT DATE: 20250101
